FAERS Safety Report 22019843 (Version 3)
Quarter: 2023Q2

REPORT INFORMATION
  Report Type: Spontaneous
  Country: US (occurrence: US)
  Receive Date: 20230222
  Receipt Date: 20230417
  Transmission Date: 20230722
  Serious: No
  Sender: FDA-Public Use
  Company Number: US-BIOVITRUM-2023US01484

PATIENT
  Age: 57 Year
  Sex: Male

DRUGS (1)
  1. KINERET [Suspect]
     Active Substance: ANAKINRA
     Indication: Still^s disease
     Dosage: ONCE A DAY
     Route: 058
     Dates: start: 20230126

REACTIONS (6)
  - Intentional product misuse [Not Recovered/Not Resolved]
  - Contusion [Unknown]
  - Nasopharyngitis [Unknown]
  - Laryngitis viral [Unknown]
  - Injection site bruising [Unknown]
  - Product use issue [Unknown]

NARRATIVE: CASE EVENT DATE: 20230126
